FAERS Safety Report 4910026-7 (Version None)
Quarter: 2006Q1

REPORT INFORMATION
  Report Type: 
  Country: None (occurrence: None)
  Receive Date: 20060208
  Receipt Date: 20060126
  Transmission Date: 20060701
  Serious: Yes (Life-Threatening, Hospitalization)
  Sender: FDA-Public Use
  Company Number: US016654

PATIENT
  Age: 71 Year
  Sex: Female

DRUGS (1)
  1. VIGIL [Suspect]
     Indication: SLEEP APNOEA SYNDROME
     Dosage: 100 MG UNK ORAL
     Route: 048
     Dates: start: 20051116, end: 20051206

REACTIONS (2)
  - CARDIOGENIC SHOCK [None]
  - PULMONARY EMBOLISM [None]
